FAERS Safety Report 5706905-3 (Version None)
Quarter: 2008Q2

REPORT INFORMATION
  Report Type: 
  Country: None (occurrence: None)
  Receive Date: 20080416
  Receipt Date: 20080408
  Transmission Date: 20081010
  Serious: Yes (Life-Threatening)
  Sender: FDA-Public Use
  Company Number: JP-ELI_LILLY_AND_COMPANY-JP200804000003

PATIENT
  Sex: Female

DRUGS (6)
  1. HUMATROPE [Suspect]
     Indication: GROWTH HORMONE DEFICIENCY
     Dosage: 0.2 MG, DAILY (1/D)
     Route: 058
     Dates: start: 20070101, end: 20080301
  2. CORTRIL [Concomitant]
     Dosage: 15 MG, UNK
     Route: 048
  3. THYRADIN S [Concomitant]
     Dosage: 75 UG, DAILY (1/D)
     Route: 048
  4. PREMARIN [Concomitant]
     Dosage: 0.625UNK, UNK
     Route: 048
  5. DUPHASTON [Concomitant]
     Dosage: 5 MG, DAILY (1/D)
     Route: 048
  6. DEPAKENE [Concomitant]
     Dosage: 400 MG, 2/D
     Route: 048

REACTIONS (1)
  - BRAIN NEOPLASM [None]
